FAERS Safety Report 6148228-7 (Version None)
Quarter: 2009Q2

REPORT INFORMATION
  Report Type: 
  Country: None (occurrence: None)
  Receive Date: 20090408
  Receipt Date: 20090402
  Transmission Date: 20091009
  Serious: Yes (Hospitalization)
  Sender: FDA-Public Use
  Company Number: US-KINGPHARMUSA00001-K200900378

PATIENT
  Age: 85 Year
  Sex: Female

DRUGS (6)
  1. ALTACE [Suspect]
     Dosage: 2.5 MG, QD
     Route: 048
  2. CARDENSIEL [Suspect]
     Dosage: 1.25 MG, QD
     Route: 048
  3. PLAVIX [Concomitant]
     Route: 048
  4. KARDEGIC                           /00002703/ [Concomitant]
     Route: 048
  5. VASTEN                             /00880402/ [Concomitant]
  6. INEXIUM                            /01479302/ [Concomitant]

REACTIONS (8)
  - ANAEMIA [None]
  - DRUG INTERACTION [None]
  - DYSPNOEA EXERTIONAL [None]
  - FALL [None]
  - HYPOTENSION [None]
  - OCCULT BLOOD POSITIVE [None]
  - OEDEMA PERIPHERAL [None]
  - TRAUMATIC HAEMATOMA [None]
